FAERS Safety Report 24035442 (Version 2)
Quarter: 2024Q3

REPORT INFORMATION
  Report Type: Spontaneous
  Country: US (occurrence: US)
  Receive Date: 20240701
  Receipt Date: 20240710
  Transmission Date: 20241016
  Serious: No
  Sender: PFIZER
  Company Number: US-PFIZER INC-202400203024

PATIENT
  Age: 75 Year
  Sex: Female
  Weight: 72.57 kg

DRUGS (4)
  1. IBRANCE [Suspect]
     Active Substance: PALBOCICLIB
     Indication: Breast cancer female
     Dosage: TAKE IT FOR 21 DAYS, OFF FOR 10
  2. IBRANCE [Suspect]
     Active Substance: PALBOCICLIB
     Indication: Breast cancer recurrent
  3. AMLODIPINE [Concomitant]
     Active Substance: AMLODIPINE BESYLATE
     Indication: Hypertension
     Dosage: 5 MG, 1X/DAY
  4. EXEMESTANE [Concomitant]
     Active Substance: EXEMESTANE
     Indication: Neoplasm malignant
     Dosage: UNK

REACTIONS (3)
  - White blood cell count decreased [Unknown]
  - Fatigue [Unknown]
  - Blood glucose increased [Unknown]
